FAERS Safety Report 20920760 (Version 6)
Quarter: 2022Q4

REPORT INFORMATION
  Report Type: Spontaneous
  Country: US (occurrence: None)
  Receive Date: 20220606
  Receipt Date: 20221027
  Transmission Date: 20230113
  Serious: Yes (Other)
  Sender: FDA-Public Use
  Company Number: US-ROCHE-3107771

PATIENT
  Age: 56 Year
  Sex: Male
  Weight: 82.900 kg

DRUGS (2)
  1. ALECENSA [Suspect]
     Active Substance: ALECTINIB HYDROCHLORIDE
     Indication: Lung neoplasm malignant
     Route: 048
     Dates: start: 20220128
  2. ALECENSA [Suspect]
     Active Substance: ALECTINIB HYDROCHLORIDE
     Route: 048
     Dates: start: 202112

REACTIONS (5)
  - Diabetes mellitus [Recovered/Resolved]
  - Tooth loss [Recovered/Resolved]
  - Weight fluctuation [Recovered/Resolved]
  - Erectile dysfunction [Unknown]
  - Blood glucose increased [Unknown]
